FAERS Safety Report 7560366-0 (Version None)
Quarter: 2011Q2

REPORT INFORMATION
  Report Type: 
  Country: None (occurrence: None)
  Receive Date: 20110621
  Receipt Date: 20110608
  Transmission Date: 20111010
  Serious: Yes (Other)
  Sender: FDA-Public Use
  Company Number: US-AMGEN-USASP2011029613

PATIENT
  Age: 25 Year
  Sex: Female

DRUGS (1)
  1. ENBREL [Suspect]
     Indication: RHEUMATOID ARTHRITIS
     Dosage: 50 MG, QWK
     Dates: start: 20060801

REACTIONS (6)
  - COMPLICATION OF DELIVERY [None]
  - INJECTION SITE PAIN [None]
  - ARRESTED LABOUR [None]
  - INJECTION SITE HAEMORRHAGE [None]
  - PUERPERAL PYREXIA [None]
  - ARTIFICIAL RUPTURE OF MEMBRANES [None]
